FAERS Safety Report 11455541 (Version 4)
Quarter: 2016Q1

REPORT INFORMATION
  Report Type: Spontaneous
  Country: US (occurrence: US)
  Receive Date: 20150903
  Receipt Date: 20160208
  Transmission Date: 20160525
  Serious: Yes (Other)
  Sender: FDA-Public Use
  Company Number: US-PFIZER INC-2015280480

PATIENT
  Age: 71 Year
  Sex: Female

DRUGS (2)
  1. IBRANCE [Suspect]
     Active Substance: PALBOCICLIB
     Dosage: 100 MG, CYCLIC (1 CAPSULE A DAY FOR 21 DAYS, THEN 7 DAYS OFF)
     Dates: start: 20150902, end: 201512
  2. IBRANCE [Suspect]
     Active Substance: PALBOCICLIB
     Indication: BREAST CANCER METASTATIC
     Dosage: 125 MG, CYCLIC (1 CAP EVERY DAY FOR 21 DAYS ON; 7 DAYS OFF)
     Dates: start: 20150810

REACTIONS (5)
  - White blood cell count decreased [Not Recovered/Not Resolved]
  - Abdominal discomfort [Unknown]
  - Disease progression [Not Recovered/Not Resolved]
  - Platelet count decreased [Not Recovered/Not Resolved]
  - Breast cancer metastatic [Not Recovered/Not Resolved]
